FAERS Safety Report 4779419-5 (Version None)
Quarter: 2005Q3

REPORT INFORMATION
  Report Type: 
  Country: None (occurrence: None)
  Receive Date: 20050914
  Receipt Date: 20050427
  Transmission Date: 20060218
  Serious: Yes (Hospitalization)
  Sender: FDA-Public Use
  Company Number: 163-20785-05010063

PATIENT
  Age: 49 Year
  Sex: Male

DRUGS (36)
  1. THALOMID [Suspect]
     Indication: MULTIPLE MYELOMA
     Dosage: 200 MG, QD, ORAL;  ORAL
     Route: 048
     Dates: start: 20040810
  2. DEXAMETHASONE [Suspect]
     Indication: MULTIPLE MYELOMA
     Dosage: 40 MG, QD, ORAL;  UNKNOWN
     Route: 048
     Dates: start: 20040810, end: 20040813
  3. DEXAMETHASONE [Suspect]
     Indication: MULTIPLE MYELOMA
     Dosage: 40 MG, QD, ORAL;  UNKNOWN
     Route: 048
     Dates: start: 20040630
  4. MELPHALAN (MELPHALAN) [Suspect]
     Indication: MULTIPLE MYELOMA
     Dosage: 270 MG, QD, INTRAVENOUS;  258 MG, QD, INTRAVENOUS
     Route: 042
     Dates: start: 20041011, end: 20041011
  5. MELPHALAN (MELPHALAN) [Suspect]
     Indication: MULTIPLE MYELOMA
     Dosage: 270 MG, QD, INTRAVENOUS;  258 MG, QD, INTRAVENOUS
     Route: 042
     Dates: start: 20050125, end: 20050125
  6. BORTEZOMIB (BORTEZOMIB) [Suspect]
     Indication: MULTIPLE MYELOMA
     Dosage: 1.9 MG, QD, INTRAVENOUS
     Route: 042
     Dates: start: 20040807, end: 20040807
  7. BORTEZOMIB (BORTEZOMIB) [Suspect]
     Indication: MULTIPLE MYELOMA
     Dosage: 1.9 MG, QD, INTRAVENOUS
     Route: 042
     Dates: start: 20040810, end: 20040810
  8. BORTEZOMIB (BORTEZOMIB) [Suspect]
     Indication: MULTIPLE MYELOMA
     Dosage: 1.9 MG, QD, INTRAVENOUS
     Route: 042
     Dates: start: 20040814, end: 20040814
  9. BORTEZOMIB (BORTEZOMIB) [Suspect]
     Indication: MULTIPLE MYELOMA
     Dosage: 1.9 MG, QD, INTRAVENOUS
     Route: 042
     Dates: start: 20040817, end: 20040817
  10. BORTEZOMIB (BORTEZOMIB) [Suspect]
     Indication: MULTIPLE MYELOMA
     Dosage: 1.9 MG, QD, INTRAVENOUS
     Route: 042
     Dates: start: 20040630
  11. ADRIAMYCIN PFS [Suspect]
     Indication: MULTIPLE MYELOMA
     Dosage: 19 MG, QD, INTRAVENOUS
     Route: 042
     Dates: start: 20040810, end: 20040813
  12. ADRIAMYCIN PFS [Suspect]
     Indication: MULTIPLE MYELOMA
     Dosage: 19 MG, QD, INTRAVENOUS
     Route: 042
     Dates: start: 20040630
  13. CYCLOPHOSPHAMIDE [Suspect]
     Indication: MULTIPLE MYELOMA
     Dosage: 772 MG, QD, INTRAVENOUS
     Route: 042
     Dates: start: 20040810, end: 20040813
  14. CYCLOPHOSPHAMIDE [Suspect]
     Indication: MULTIPLE MYELOMA
     Dosage: 772 MG, QD, INTRAVENOUS
     Route: 042
     Dates: start: 20040630
  15. ETOPOSIDE [Suspect]
     Indication: MULTIPLE MYELOMA
     Dosage: 77 MG, QD, INTRAVNEOUS
     Route: 042
     Dates: start: 20040810, end: 20040813
  16. ETOPOSIDE [Suspect]
     Indication: MULTIPLE MYELOMA
     Dosage: 77 MG, QD, INTRAVNEOUS
     Route: 042
     Dates: start: 20040630
  17. FLAGYL [Concomitant]
  18. VANCOMYCIN [Concomitant]
  19. FOLIC ACID [Concomitant]
  20. PROCRIT [Concomitant]
  21. ATIVAN [Concomitant]
  22. OXYCONTIN [Concomitant]
  23. OXYCODONE HCL [Concomitant]
  24. ZOLOFT [Concomitant]
  25. TRILEPTAL [Concomitant]
  26. ZANTAC [Concomitant]
  27. SYNTHROID [Concomitant]
  28. LASIX [Concomitant]
  29. MAGNESIUM OXIDE (MAGNESIUM OXIDE) [Concomitant]
  30. ACYCLOVIR [Concomitant]
  31. SEROQUEL [Concomitant]
  32. KLONOPIN [Concomitant]
  33. OSCAL (CALCIUM CARBONATE) [Concomitant]
  34. MULTIVITAMIN [Concomitant]
  35. NORVASC [Concomitant]
  36. LISINOPRIL [Concomitant]

REACTIONS (14)
  - COLITIS [None]
  - CONFUSIONAL STATE [None]
  - DEHYDRATION [None]
  - DIARRHOEA [None]
  - HYPERKALAEMIA [None]
  - MENTAL STATUS CHANGES [None]
  - METABOLIC ACIDOSIS [None]
  - METABOLIC ENCEPHALOPATHY [None]
  - PNEUMONIA [None]
  - PYREXIA [None]
  - RENAL FAILURE ACUTE [None]
  - RENAL FAILURE CHRONIC [None]
  - RENAL HAEMATOMA [None]
  - THROMBOCYTOPENIA [None]
